FAERS Safety Report 10305282 (Version 1)
Quarter: 2014Q3

REPORT INFORMATION
  Report Type: Spontaneous
  Country: US (occurrence: None)
  Receive Date: 20140711
  Receipt Date: 20140711
  Transmission Date: 20150326
  Serious: Yes (Other)
  Sender: FDA-Public Use
  Company Number: None

PATIENT
  Age: 48 Year
  Sex: Female
  Weight: 79.83 kg

DRUGS (1)
  1. PAROXETINE [Suspect]
     Active Substance: PAROXETINE\PAROXETINE HYDROCHLORIDE
     Indication: DEPRESSION
     Dosage: 40 MG ONCE DAILY TAKEN BY MOUTH
     Route: 048

REACTIONS (5)
  - Weight increased [None]
  - Loss of libido [None]
  - Anorgasmia [None]
  - Metabolic disorder [None]
  - Weight loss poor [None]

NARRATIVE: CASE EVENT DATE: 20140709
